FAERS Safety Report 12759233 (Version 1)
Quarter: 2016Q3

REPORT INFORMATION
  Report Type: Report from Study
  Country: US (occurrence: US)
  Receive Date: 20160919
  Receipt Date: 20160919
  Transmission Date: 20161109
  Serious: No
  Sender: FDA-Public Use
  Company Number: PHEH2016US023576

PATIENT
  Sex: Female

DRUGS (1)
  1. ENTRESTO [Suspect]
     Active Substance: SACUBITRIL\VALSARTAN
     Indication: PRODUCT USED FOR UNKNOWN INDICATION
     Dosage: 0.5 DF (BREAKING ENTRESTO INTO HALF TABLET, HALF IN AM AND HALF IN PM), BID
     Route: 065

REACTIONS (5)
  - Hypotension [Unknown]
  - Feeling abnormal [Unknown]
  - Eye pain [Unknown]
  - Eye swelling [Unknown]
  - Wrong technique in product usage process [Unknown]
